FAERS Safety Report 21666412 (Version 2)
Quarter: 2022Q4

REPORT INFORMATION
  Report Type: Report from Study
  Country: MX (occurrence: MX)
  Receive Date: 20221201
  Receipt Date: 20221206
  Transmission Date: 20230113
  Serious: Yes (Death)
  Sender: FDA-Public Use
  Company Number: MX-002147023-NVSC2022MX278642

PATIENT
  Age: 82 Year
  Sex: Female
  Weight: 43 kg

DRUGS (2)
  1. EXFORGE [Suspect]
     Active Substance: AMLODIPINE BESYLATE\VALSARTAN
     Indication: Hypertension
     Dosage: 1 DOSAGE FORM, QD (STARTED 4 YEARS AGO, DOES NOT KNOW THE EXACT DATE)
     Route: 048
     Dates: end: 202210
  2. PISALPRA [Concomitant]
     Indication: Depression
     Dosage: 1 DOSAGE FORM, QD (STARTED 4 YEARS AGO, DOES NOT KNOW EXACT DATE)
     Route: 048
     Dates: end: 202210

REACTIONS (4)
  - Infarction [Fatal]
  - Blood pressure fluctuation [Unknown]
  - Eating disorder [Unknown]
  - Peripheral swelling [Unknown]

NARRATIVE: CASE EVENT DATE: 20220901
